FAERS Safety Report 22376645 (Version 1)
Quarter: 2023Q2

REPORT INFORMATION
  Report Type: Spontaneous
  Country: US (occurrence: None)
  Receive Date: 20230528
  Receipt Date: 20230528
  Transmission Date: 20230722
  Serious: No
  Sender: FDA-Public Use
  Company Number: 2023A116444

PATIENT
  Sex: Male

DRUGS (1)
  1. TAGRISSO [Suspect]
     Active Substance: OSIMERTINIB
     Route: 048

REACTIONS (7)
  - Drug intolerance [Unknown]
  - Dermatitis acneiform [Unknown]
  - Nausea [Unknown]
  - Fatigue [Unknown]
  - Brain fog [Unknown]
  - Discomfort [Unknown]
  - Product use issue [Unknown]
